FAERS Safety Report 20771657 (Version 1)
Quarter: 2022Q2

REPORT INFORMATION
  Report Type: Spontaneous
  Country: US (occurrence: US)
  Receive Date: 20220430
  Receipt Date: 20220430
  Transmission Date: 20220721
  Serious: Yes (Other)
  Sender: FDA-Public Use
  Company Number: US-LUPIN PHARMACEUTICALS INC.-2022-06304

PATIENT
  Age: 28 Year
  Sex: Male

DRUGS (7)
  1. CEFTRIAXONE [Suspect]
     Active Substance: CEFTRIAXONE
     Indication: Gonorrhoea
     Dosage: 500 MILLIGRAM
     Route: 030
  2. GABAPENTIN [Suspect]
     Active Substance: GABAPENTIN
     Indication: Cystitis interstitial
     Dosage: 300 MILLIGRAM, TID
     Route: 065
  3. AZITHROMYCIN [Concomitant]
     Active Substance: AZITHROMYCIN
     Indication: Gonorrhoea
     Dosage: 2 GRAM (ONE DOSE)
     Route: 065
  4. DOXYCYCLINE [Concomitant]
     Active Substance: DOXYCYCLINE
     Indication: Urethritis
     Dosage: UNK
     Route: 065
  5. DICLOFENAC [Concomitant]
     Active Substance: DICLOFENAC
     Indication: Prostatitis
     Dosage: UNK
     Route: 065
  6. KETAMINE [Concomitant]
     Active Substance: KETAMINE
     Indication: Substance use
     Dosage: 4000 MILLIGRAM, QD
     Route: 045
  7. KETAMINE [Concomitant]
     Active Substance: KETAMINE
     Dosage: UNK ( (USE INCREASED DURING THE LOCKDOWN PHASE OF THE COVID-19 PANDEMIC)
     Route: 045

REACTIONS (3)
  - Drug ineffective for unapproved indication [Unknown]
  - Drug ineffective [Unknown]
  - Off label use [Unknown]
